FAERS Safety Report 14098468 (Version 2)
Quarter: 2017Q4

REPORT INFORMATION
  Report Type: Spontaneous
  Country: MX (occurrence: MX)
  Receive Date: 20171017
  Receipt Date: 20171018
  Transmission Date: 20180321
  Serious: Yes (Other)
  Sender: FDA-Public Use
  Company Number: MX-009507513-1710MEX004564

PATIENT
  Age: 24 Year
  Sex: Female

DRUGS (1)
  1. IMPLANON [Suspect]
     Active Substance: ETONOGESTREL
     Dosage: 1 IMPLANT, UNK
     Route: 059
     Dates: start: 20150223, end: 20171004

REACTIONS (8)
  - Uterine leiomyoma [Unknown]
  - Uterine leiomyoma [Not Recovered/Not Resolved]
  - Asthenia [Unknown]
  - Pregnancy with implant contraceptive [Recovered/Resolved]
  - Abdominal pain lower [Unknown]
  - Abortion induced [Recovered/Resolved]
  - Unintended pregnancy [Recovered/Resolved]
  - Menstruation irregular [Unknown]

NARRATIVE: CASE EVENT DATE: 201502
